FAERS Safety Report 6763979-9 (Version None)
Quarter: 2010Q2

REPORT INFORMATION
  Report Type: 
  Country: None (occurrence: None)
  Receive Date: 20100610
  Receipt Date: 20100603
  Transmission Date: 20101027
  Serious: Yes (Other)
  Sender: FDA-Public Use
  Company Number: US-TEVA-214606USA

PATIENT
  Sex: Female
  Weight: 91.63 kg

DRUGS (5)
  1. ZOLPIDEM TARTRATE [Suspect]
     Indication: SLEEP DISORDER
     Route: 048
     Dates: start: 20090911, end: 20090923
  2. ZOLPIDEM TARTRATE [Suspect]
     Indication: INSOMNIA
     Dosage: CR, MODIFIED RELEASE TABLET, AT BEDTIME
     Route: 048
     Dates: start: 20090924, end: 20090927
  3. DOXEPIN HCL [Concomitant]
     Dates: start: 19980101, end: 20090915
  4. GABAPENTIN [Concomitant]
     Dates: start: 20090916, end: 20090928
  5. PREGABALIN [Concomitant]
     Dates: start: 20090924, end: 20090929

REACTIONS (19)
  - ABDOMINAL PAIN UPPER [None]
  - CHEST PAIN [None]
  - CHOLECYSTITIS ACUTE [None]
  - DIARRHOEA [None]
  - FLANK PAIN [None]
  - HEADACHE [None]
  - HYPERHIDROSIS [None]
  - HYPOAESTHESIA [None]
  - INFECTION [None]
  - MUSCLE SPASMS [None]
  - MUSCULOSKELETAL PAIN [None]
  - NAUSEA [None]
  - OROPHARYNGEAL PAIN [None]
  - PAIN [None]
  - PARAESTHESIA [None]
  - RENAL PAIN [None]
  - RHINORRHOEA [None]
  - SLEEP DISORDER [None]
  - VOMITING [None]
